FAERS Safety Report 4273886-1 (Version None)
Quarter: 2004Q1

REPORT INFORMATION
  Report Type: 
  Country: None (occurrence: None)
  Receive Date: 20040115
  Receipt Date: 20031229
  Transmission Date: 20041129
  Serious: Yes (Disabling, Other)
  Sender: FDA-Public Use
  Company Number: USA031255427

PATIENT
  Age: 51 Year
  Sex: Female
  Weight: 100 kg

DRUGS (2)
  1. HUMULIN R [Suspect]
     Dosage: 10 U/2 DAY
     Dates: start: 19900101
  2. HUMULIN N [Suspect]
     Dosage: 50 U/2 DAY
     Dates: start: 19900101

REACTIONS (2)
  - BLINDNESS [None]
  - OPTIC ISCHAEMIC NEUROPATHY [None]
